FAERS Safety Report 13829527 (Version 1)
Quarter: 2017Q3

REPORT INFORMATION
  Report Type: Spontaneous
  Country: CN (occurrence: CN)
  Receive Date: 20170803
  Receipt Date: 20170803
  Transmission Date: 20171127
  Serious: Yes (Other)
  Sender: FDA-Public Use
  Company Number: CN-PFIZER INC-2017334747

PATIENT

DRUGS (1)
  1. TYGACIL [Suspect]
     Active Substance: TIGECYCLINE
     Indication: ACINETOBACTER INFECTION
     Dosage: UNK

REACTIONS (2)
  - Disease recurrence [Unknown]
  - Acinetobacter infection [Unknown]

NARRATIVE: CASE EVENT DATE: 20170801
